FAERS Safety Report 20485162 (Version 2)
Quarter: 2022Q1

REPORT INFORMATION
  Report Type: Spontaneous
  Country: NL (occurrence: NL)
  Receive Date: 20220217
  Receipt Date: 20220224
  Transmission Date: 20220423
  Serious: Yes (Other)
  Sender: FDA-Public Use
  Company Number: NL-MLMSERVICE-20220131-3346935-1

PATIENT
  Sex: Male

DRUGS (3)
  1. ARIPIPRAZOLE [Suspect]
     Active Substance: ARIPIPRAZOLE
     Indication: Bipolar disorder
     Dosage: UNK(DOSE REDUCED )
     Route: 065
  2. ARIPIPRAZOLE [Suspect]
     Active Substance: ARIPIPRAZOLE
     Dosage: 30 MILLIGRAM(30 MG MAINTENANCE THERAPY )
     Route: 065
  3. LORAZEPAM [Suspect]
     Active Substance: LORAZEPAM
     Indication: Catatonia
     Dosage: 24 MILLIGRAM, ONCE A DAY
     Route: 065

REACTIONS (5)
  - Catatonia [Recovering/Resolving]
  - Paradoxical drug reaction [Recovering/Resolving]
  - Condition aggravated [Recovering/Resolving]
  - Drug ineffective [Recovering/Resolving]
  - Extrapyramidal disorder [Unknown]
